FAERS Safety Report 4789635-4 (Version None)
Quarter: 2005Q4

REPORT INFORMATION
  Report Type: 
  Country: None (occurrence: None)
  Receive Date: 20051004
  Receipt Date: 20050926
  Transmission Date: 20060501
  Serious: Yes (Hospitalization, Other)
  Sender: FDA-Public Use
  Company Number: 2005133854

PATIENT
  Age: 75 Year
  Sex: Female
  Weight: 68.4932 kg

DRUGS (2)
  1. LIPITOR [Suspect]
     Indication: BLOOD CHOLESTEROL INCREASED
     Dosage: 40 MG (40 MG, 1 IN 1 D), ORAL
     Route: 048
  2. CARDIAC THERAPY (CARDIAC THERAPY) [Concomitant]

REACTIONS (5)
  - ABASIA [None]
  - HEADACHE [None]
  - NERVE COMPRESSION [None]
  - OBSTRUCTION [None]
  - VASCULAR BYPASS GRAFT [None]
